FAERS Safety Report 14524460 (Version 1)
Quarter: 2018Q1

REPORT INFORMATION
  Report Type: Spontaneous
  Country: US (occurrence: US)
  Receive Date: 20180213
  Receipt Date: 20180213
  Transmission Date: 20180509
  Serious: No
  Sender: FDA-Public Use
  Company Number: US-TEVA-796121ACC

PATIENT
  Sex: Female

DRUGS (7)
  1. ESTRADIOL. [Concomitant]
     Active Substance: ESTRADIOL
  2. ADVIL [Concomitant]
     Active Substance: IBUPROFEN
  3. ASPIRIN. [Concomitant]
     Active Substance: ASPIRIN
     Indication: HEADACHE
  4. CAFFEINE. [Concomitant]
     Active Substance: CAFFEINE
     Indication: HEADACHE
  5. NALOXONE W/PENTAZOCINE [Suspect]
     Active Substance: NALOXONE\PENTAZOCINE
     Indication: PAIN
     Dosage: DOSE STRENGTH: 50/0.5MG, EVERY 4-6 HOURS AS NEEDED
     Route: 048
     Dates: start: 2014
  6. PROGESTERONE. [Concomitant]
     Active Substance: PROGESTERONE
  7. BUTALBITAL [Concomitant]
     Active Substance: BUTALBITAL
     Indication: HEADACHE

REACTIONS (6)
  - Blood glucose increased [Unknown]
  - Abdominal distension [Unknown]
  - Leptin level increased [Unknown]
  - Flatulence [Unknown]
  - Diarrhoea [Unknown]
  - Blood insulin increased [Unknown]
